FAERS Safety Report 9348278 (Version 1)
Quarter: 2013Q2

REPORT INFORMATION
  Report Type: Spontaneous
  Country: US (occurrence: None)
  Receive Date: 20130612
  Receipt Date: 20130612
  Transmission Date: 20140414
  Serious: Yes (Life-Threatening)
  Sender: FDA-Public Use
  Company Number: None

PATIENT
  Age: 5 Year
  Sex: Female
  Weight: 19.7 kg

DRUGS (1)
  1. TOPIRAMATE [Suspect]
     Indication: EPILEPSY
     Dosage: 150 MG AM 200 MG PM 25 MG + 100 MG TABLETS
     Route: 048

REACTIONS (5)
  - Convulsion [None]
  - Condition aggravated [None]
  - Product substitution issue [None]
  - Therapeutic response unexpected with drug substitution [None]
  - Grand mal convulsion [None]
